FAERS Safety Report 4808637-2 (Version None)
Quarter: 2005Q4

REPORT INFORMATION
  Report Type: 
  Country: None (occurrence: None)
  Receive Date: 20051021
  Receipt Date: 20011101
  Transmission Date: 20060501
  Serious: No
  Sender: FDA-Public Use
  Company Number: DE_011107223

PATIENT
  Age: 20 Year
  Sex: Male

DRUGS (1)
  1. ZYPREXA [Suspect]
     Indication: SCHIZOPHRENIA
     Dosage: 20 MG/DAY
     Dates: start: 20010118

REACTIONS (2)
  - NEUTROPENIA [None]
  - WHITE BLOOD CELL COUNT DECREASED [None]
